FAERS Safety Report 6139910-6 (Version None)
Quarter: 2009Q2

REPORT INFORMATION
  Report Type: 
  Country: None (occurrence: None)
  Receive Date: 20090401
  Receipt Date: 20090323
  Transmission Date: 20091009
  Serious: Yes (Other)
  Sender: FDA-Public Use
  Company Number: ZA-MERCK-0812ZAF00010

PATIENT
  Age: 65 Year
  Sex: Male

DRUGS (1)
  1. INVANZ [Suspect]
     Indication: ABSCESS
     Route: 041

REACTIONS (2)
  - DEMENTIA [None]
  - PSYCHOTIC DISORDER [None]
